FAERS Safety Report 23718297 (Version 1)
Quarter: 2024Q2

REPORT INFORMATION
  Report Type: Spontaneous
  Country: US (occurrence: None)
  Receive Date: 20240406
  Receipt Date: 20240406
  Transmission Date: 20240716
  Serious: Yes (Life-Threatening, Hospitalization, Other)
  Sender: FDA-Public Use
  Company Number: None

PATIENT
  Age: 28 Year
  Sex: Female
  Weight: 58 kg

DRUGS (3)
  1. WEGOVY [Suspect]
     Active Substance: SEMAGLUTIDE
     Indication: Hyperlipidaemia
     Dosage: OTHER FREQUENCY : WEEKLY;?
     Route: 058
  2. WEGOVY [Suspect]
     Active Substance: SEMAGLUTIDE
     Indication: Polycystic ovarian syndrome
  3. WEGOVY [Concomitant]
     Active Substance: SEMAGLUTIDE
     Dates: start: 20230216, end: 20240308

REACTIONS (3)
  - Diarrhoea [None]
  - Intussusception [None]
  - Food poisoning [None]

NARRATIVE: CASE EVENT DATE: 20240313
